FAERS Safety Report 10222392 (Version 1)
Quarter: 2014Q2

REPORT INFORMATION
  Report Type: Spontaneous
  Country: KR (occurrence: KR)
  Receive Date: 20140606
  Receipt Date: 20140606
  Transmission Date: 20141212
  Serious: Yes (Other)
  Sender: FDA-Public Use
  Company Number: KR-JNJFOC-20140602153

PATIENT
  Sex: 0

DRUGS (1)
  1. INFLIXIMAB [Suspect]
     Indication: ANKYLOSING SPONDYLITIS
     Dosage: DOSE LOADING PHASE: WEEK 0, 2 AND 6??MAINTENANCE PHASE: WEEK 14, 22, 30, 38, 46 AND 54
     Route: 042

REACTIONS (1)
  - Pulmonary tuberculosis [Unknown]
